FAERS Safety Report 12684426 (Version 4)
Quarter: 2017Q1

REPORT INFORMATION
  Report Type: Spontaneous
  Country: JP (occurrence: JP)
  Receive Date: 20160825
  Receipt Date: 20170214
  Transmission Date: 20170428
  Serious: Yes (Hospitalization, Other)
  Sender: FDA-Public Use
  Company Number: DE-ACTELION-A-US2016-141278

PATIENT
  Age: 33 Year
  Sex: Female

DRUGS (13)
  1. VENTAVIS [Suspect]
     Active Substance: ILOPROST
     Dosage: 5 MCG, QID
     Route: 055
     Dates: start: 20160712, end: 20160712
  2. TRANEXAMIC ACID. [Concomitant]
     Active Substance: TRANEXAMIC ACID
  3. VENTAVIS [Suspect]
     Active Substance: ILOPROST
     Indication: PULMONARY ARTERIAL HYPERTENSION
     Dosage: 6 ID
     Route: 055
     Dates: start: 20160712
  4. ADCIRCA [Concomitant]
     Active Substance: TADALAFIL
     Dosage: UNK
  5. NIFEDIPINE. [Concomitant]
     Active Substance: NIFEDIPINE
     Dosage: UNK
  6. OXYGEN. [Concomitant]
     Active Substance: OXYGEN
  7. VENTAVIS [Suspect]
     Active Substance: ILOPROST
     Dosage: 5 MCG, 6XDAILY
     Route: 055
     Dates: start: 20160713, end: 20160814
  8. VENTAVIS [Suspect]
     Active Substance: ILOPROST
     Dosage: 2.5 MCG, QD
     Route: 055
     Dates: start: 20160712, end: 20160712
  9. VENTAVIS [Suspect]
     Active Substance: ILOPROST
     Dosage: 5 MCG, TID
     Route: 055
     Dates: start: 20160907, end: 20160928
  10. BERAPROST SODIUM [Concomitant]
     Active Substance: BERAPROST SODIUM
     Dosage: UNK
  11. OPSUMIT [Suspect]
     Active Substance: MACITENTAN
     Indication: PULMONARY ARTERIAL HYPERTENSION
     Dosage: 10 MG, QD
     Route: 048
     Dates: start: 20150817
  12. ADONAMIN [Concomitant]
  13. VENTAVIS [Suspect]
     Active Substance: ILOPROST
     Dosage: 5 MCG, QID
     Route: 055
     Dates: start: 20160929

REACTIONS (5)
  - Haemoptysis [Recovered/Resolved]
  - Nasopharyngitis [Unknown]
  - Headache [Recovering/Resolving]
  - White blood cell count decreased [Not Recovered/Not Resolved]
  - Blood pressure decreased [Recovered/Resolved]

NARRATIVE: CASE EVENT DATE: 2016
